FAERS Safety Report 15949874 (Version 1)
Quarter: 2019Q1

REPORT INFORMATION
  Report Type: Spontaneous
  Country: FR (occurrence: FR)
  Receive Date: 20190211
  Receipt Date: 20190211
  Transmission Date: 20190417
  Serious: Yes (Death, Hospitalization, Other)
  Sender: FDA-Public Use
  Company Number: FR-PFIZER INC-2019061415

PATIENT
  Age: 67 Year
  Sex: Male

DRUGS (29)
  1. ADENURIC [Concomitant]
     Active Substance: FEBUXOSTAT
     Dosage: 1 DF, 1X/DAY IN THE MORNING
     Route: 065
  2. STAGID [Concomitant]
     Active Substance: METFORMIN PAMOATE
     Dosage: 1 DF IN THE MORNING, AFTERNOON AND EVENING
  3. FEBUXOSTAT. [Concomitant]
     Active Substance: FEBUXOSTAT
     Dosage: 1 DF, 1X/DAY IN THE MORNING
  4. PREGABALIN. [Suspect]
     Active Substance: PREGABALIN
     Dosage: 25 MG, BID, AT 8 AM AND AT 8 PM
     Dates: start: 20180623
  5. PROCORALAN [Concomitant]
     Active Substance: IVABRADINE
     Dosage: 1 DF IN THE MORNING AND 1 DF IN THE EVENING
  6. COTRIATEC [Concomitant]
     Active Substance: HYDROCHLOROTHIAZIDE\RAMIPRIL
     Dosage: 1 DF, 1X/DAY IN THE MORNING
  7. AMLODIPINE [Concomitant]
     Active Substance: AMLODIPINE BESYLATE
  8. ZOPICLONE [Concomitant]
     Active Substance: ZOPICLONE
     Dosage: 1 DF, 1X/DAY QD
     Dates: start: 20180623
  9. RAMIPRIL. [Concomitant]
     Active Substance: RAMIPRIL
     Dosage: 5 MG, 1X/DAY QD
  10. PREGABALIN. [Suspect]
     Active Substance: PREGABALIN
     Indication: PERIPHERAL SENSORY NEUROPATHY
     Dosage: 50 MG, BID
     Dates: start: 201710, end: 201710
  11. IVABRADINE [Concomitant]
     Active Substance: IVABRADINE
     Dosage: 1.5 DF AT 8 AM AND 1.5 DF AT 8 PM
  12. ASPIRINE PROTECT [Concomitant]
     Active Substance: ASPIRIN
     Dosage: 1 DF, 1X/DAY IN THE MORNING
     Route: 065
  13. ACETYLSALICYLIC ACID [Concomitant]
     Active Substance: ASPIRIN
     Dosage: 1 DF, 1X/DAY QD
  14. PREDNISONE. [Concomitant]
     Active Substance: PREDNISONE
     Dosage: 5 DF, 1X/DAY IN THE MORNING
     Dates: start: 20180623
  15. LIPTRUZET [Concomitant]
     Active Substance: ATORVASTATIN CALCIUM\EZETIMIBE
     Dosage: 1 DF, 1X/DAY IN THE EVENING
  16. TRINITRINE [Concomitant]
     Active Substance: NITROGLYCERIN
     Dosage: 0.3 MG PER DOSE
  17. LANSOPRAZOLE. [Concomitant]
     Active Substance: LANSOPRAZOLE
     Dosage: 1 DF, 1X/DAY AT 8 PM
     Dates: start: 20180623
  18. ATORVASTATIN CALCIUM/EZETIMIBE [Concomitant]
     Dosage: 1 DF, 1X/DAY AT 8 PM
  19. DULOXETINE [DULOXETINE HYDROCHLORIDE] [Suspect]
     Active Substance: DULOXETINE HYDROCHLORIDE
     Indication: PERIPHERAL SENSORY NEUROPATHY
     Dosage: 60 MG, QD
     Dates: start: 201712, end: 201806
  20. AMLOR [Concomitant]
     Active Substance: AMLODIPINE BESYLATE
     Dosage: 1 DF IN THE MORNING AND 1 DF IN THE EVENING
  21. TRIATEC (HYDROCHLOROTHIAZIDE\RAMIPRIL) [Concomitant]
     Active Substance: HYDROCHLOROTHIAZIDE\RAMIPRIL
     Dosage: 1 DF, 1X/DAY IN THE EVENING
  22. TRULICITY [Concomitant]
     Active Substance: DULAGLUTIDE
     Dosage: 1 DF (INJECTION), WEEKLY
  23. LANTUS [Concomitant]
     Active Substance: INSULIN GLARGINE
     Dosage: 20 UI DAILY IN THE EVENING
  24. NATISPRAY [Concomitant]
     Active Substance: NITROGLYCERIN
     Dosage: 0.30 MG, PRN
  25. NOVORAPID [Concomitant]
     Active Substance: INSULIN ASPART
     Dosage: UNK
     Route: 065
     Dates: start: 20180623
  26. METFORMINE [METFORMIN] [Concomitant]
     Active Substance: METFORMIN HYDROCHLORIDE
  27. LANTUS [Concomitant]
     Active Substance: INSULIN GLARGINE
     Dosage: 36 IU DAILY
  28. RAMIPRIL/HYDROCHLOORTHIAZIDE [Concomitant]
     Active Substance: HYDROCHLOROTHIAZIDE\RAMIPRIL
     Dosage: 1 DF, QD
     Route: 065
  29. DULAGLUTIDE. [Concomitant]
     Active Substance: DULAGLUTIDE

REACTIONS (5)
  - Glioblastoma [Fatal]
  - Neuralgia [Fatal]
  - Visual acuity reduced [Fatal]
  - Blindness unilateral [Fatal]
  - Headache [Fatal]

NARRATIVE: CASE EVENT DATE: 201805
